FAERS Safety Report 4915020-8 (Version None)
Quarter: 2006Q1

REPORT INFORMATION
  Report Type: 
  Country: None (occurrence: None)
  Receive Date: 20060215
  Receipt Date: 20060215
  Transmission Date: 20060701
  Serious: Yes (Disabling)
  Sender: FDA-Public Use
  Company Number: None

PATIENT
  Age: 74 Year
  Sex: Male
  Weight: 76.6579 kg

DRUGS (1)
  1. CYPHER DES CARDIAC STENT [Suspect]
     Dosage: MODEL # 21717
     Dates: start: 20060213

REACTIONS (3)
  - DEVICE FAILURE [None]
  - PROCEDURAL COMPLICATION [None]
  - WRONG TECHNIQUE IN DRUG USAGE PROCESS [None]
